FAERS Safety Report 7231114-9 (Version None)
Quarter: 2011Q1

REPORT INFORMATION
  Report Type: 
  Country: None (occurrence: None)
  Receive Date: 20110118
  Receipt Date: 20110112
  Transmission Date: 20110831
  Serious: Yes (Life-Threatening, Hospitalization)
  Sender: FDA-Public Use
  Company Number: CA-ROCHE-753089

PATIENT
  Age: 84 Year
  Sex: Male
  Weight: 80 kg

DRUGS (9)
  1. ZOPICLONE [Concomitant]
     Route: 048
  2. SIMVASTATIN [Concomitant]
     Route: 048
  3. XELODA [Concomitant]
     Route: 048
  4. AVASTIN [Suspect]
     Dosage: ROUTE: INTRAVENOUS (NOT OTHERWSE SPECIFIED)
     Route: 042
  5. LEVOTHYROXINE [Concomitant]
  6. VALSARTAN [Concomitant]
     Route: 048
  7. ASA [Concomitant]
     Route: 048
  8. CRESTOR [Concomitant]
     Route: 048
  9. LISINOPRIL [Concomitant]

REACTIONS (4)
  - LAPAROTOMY [None]
  - PERITONITIS [None]
  - SMALL INTESTINAL RESECTION [None]
  - SMALL INTESTINAL PERFORATION [None]
